FAERS Safety Report 13592868 (Version 2)
Quarter: 2018Q3

REPORT INFORMATION
  Report Type: Spontaneous
  Country: JP (occurrence: JP)
  Receive Date: 20170530
  Receipt Date: 20180713
  Transmission Date: 20181010
  Serious: Yes (Other)
  Sender: FDA-Public Use
  Company Number: JP-BAYER-2017-096403

PATIENT
  Sex: Female

DRUGS (2)
  1. BAYASPIRIN 100 MG [Suspect]
     Active Substance: ASPIRIN
     Indication: ANTICOAGULANT THERAPY
     Dosage: UNK
     Route: 048
     Dates: start: 2007
  2. HEPARIN [Concomitant]
     Active Substance: HEPARIN SODIUM
     Indication: ANTICOAGULANT THERAPY

REACTIONS (6)
  - Foetal death [None]
  - Lupus nephritis [None]
  - Placental infarction [None]
  - Maternal exposure during pregnancy [None]
  - Systemic lupus erythematosus [None]
  - Proteinuria [None]

NARRATIVE: CASE EVENT DATE: 2008
